FAERS Safety Report 4808922-4 (Version None)
Quarter: 2005Q4

REPORT INFORMATION
  Report Type: 
  Country: None (occurrence: None)
  Receive Date: 20051021
  Receipt Date: 20040315
  Transmission Date: 20060501
  Serious: No
  Sender: FDA-Public Use
  Company Number: DE_040313208

PATIENT
  Age: 41 Year
  Sex: Female

DRUGS (2)
  1. ZYPREXA [Suspect]
     Indication: SCHIZOAFFECTIVE DISORDER
     Dosage: 25 MG DAY
     Dates: start: 20030901
  2. VALPROIC ACID [Concomitant]

REACTIONS (2)
  - OVERDOSE [None]
  - PLATELET COUNT DECREASED [None]
